FAERS Safety Report 6275234-4 (Version None)
Quarter: 2009Q3

REPORT INFORMATION
  Report Type: 
  Country: None (occurrence: None)
  Receive Date: 20090721
  Receipt Date: 20090716
  Transmission Date: 20100115
  Serious: Yes (Hospitalization, Other)
  Sender: FDA-Public Use
  Company Number: KR-BAYER-200923303GPV

PATIENT
  Age: 55 Year
  Sex: Male
  Weight: 61 kg

DRUGS (22)
  1. SORAFENIB [Suspect]
     Indication: HEPATIC NEOPLASM MALIGNANT
     Dosage: TOTAL DAILY DOSE: 800 MG
     Route: 048
     Dates: start: 20090110, end: 20090525
  2. SORAFENIB [Suspect]
     Dosage: TOTAL DAILY DOSE: 800 MG
     Route: 048
     Dates: start: 20090526, end: 20090605
  3. DUPHALAC [Concomitant]
     Indication: HYPERAMMONAEMIA
     Route: 048
     Dates: start: 20090608
  4. HEPSERA [Concomitant]
     Indication: HEPATITIS B
     Route: 065
     Dates: start: 20060609, end: 20090605
  5. HEPSERA [Concomitant]
     Route: 065
     Dates: start: 20090608
  6. ZEFFIX [Concomitant]
     Indication: HEPATITIS B
     Route: 065
     Dates: start: 20090608
  7. ZEFFIX [Concomitant]
     Route: 065
     Dates: start: 20050906, end: 20090605
  8. THIOCTACID HR [Concomitant]
     Indication: DIABETES MELLITUS
     Route: 065
     Dates: start: 20040210, end: 20090605
  9. BASEN [Concomitant]
     Indication: DIABETES MELLITUS
     Route: 065
     Dates: start: 20090612
  10. BASEN [Concomitant]
     Route: 065
     Dates: start: 20090106, end: 20090605
  11. LANTUS [Concomitant]
     Indication: DIABETES MELLITUS
     Route: 065
     Dates: start: 20090612
  12. LANTUS [Concomitant]
     Route: 065
     Dates: start: 20051206, end: 20090605
  13. LEGALON [Concomitant]
     Indication: HEPATIC NEOPLASM MALIGNANT
     Dosage: 3 C
     Route: 065
     Dates: start: 20081121, end: 20081221
  14. URSA [Concomitant]
     Indication: HEPATIC NEOPLASM MALIGNANT
     Route: 065
     Dates: start: 20081123, end: 20081221
  15. HEPAMERZ [Concomitant]
     Indication: HEPATIC NEOPLASM MALIGNANT
     Route: 065
     Dates: start: 20081121, end: 20081221
  16. NORZYME [Concomitant]
     Indication: DYSPEPSIA
     Route: 065
     Dates: start: 20081121, end: 20081121
  17. GASMOTIN [Concomitant]
     Indication: GASTRITIS
     Route: 065
     Dates: start: 20050607, end: 20081221
  18. MEDILAC-DS [Concomitant]
     Indication: CONSTIPATION
     Dosage: 3 C
     Route: 065
     Dates: start: 20081121, end: 20081221
  19. LIVACT [Concomitant]
     Indication: HEPATIC NEOPLASM MALIGNANT
     Route: 065
     Dates: start: 20081121, end: 20081221
  20. MAGNESIUM OXIDE [Concomitant]
     Indication: CONSTIPATION
     Route: 065
     Dates: start: 20050607, end: 20081221
  21. FASTIC [Concomitant]
     Indication: DIABETES MELLITUS
     Dosage: 3 C
     Route: 065
     Dates: start: 20051206, end: 20090106
  22. PRANOLOL [Concomitant]
     Indication: HYPERTENSION
     Route: 065
     Dates: start: 20090526, end: 20090605

REACTIONS (13)
  - ALOPECIA [None]
  - ASCITES [None]
  - CONSTIPATION [None]
  - DIARRHOEA [None]
  - DUODENAL ULCER [None]
  - DYSPEPSIA [None]
  - DYSPHONIA [None]
  - EPISTAXIS [None]
  - GASTRIC ULCER [None]
  - HAEMATEMESIS [None]
  - MELAENA [None]
  - OESOPHAGEAL VARICES HAEMORRHAGE [None]
  - RASH [None]
